FAERS Safety Report 9397298 (Version 1)
Quarter: 2013Q3

REPORT INFORMATION
  Report Type: Report from Study
  Country: FR (occurrence: FR)
  Receive Date: 20130712
  Receipt Date: 20130712
  Transmission Date: 20140515
  Serious: Yes (Hospitalization)
  Sender: FDA-Public Use
  Company Number: FR-ROCHE-1141926

PATIENT
  Sex: Female
  Weight: 50 kg

DRUGS (7)
  1. MYCOPHENOLATE MOFETIL [Suspect]
     Indication: RENAL TRANSPLANT
     Route: 048
     Dates: start: 20120213
  2. MYCOPHENOLATE MOFETIL [Suspect]
     Indication: PROPHYLAXIS AGAINST TRANSPLANT REJECTION
     Route: 048
  3. NEORAL [Suspect]
     Indication: RENAL TRANSPLANT
     Route: 048
     Dates: start: 20120213
  4. NEORAL [Suspect]
     Indication: PROPHYLAXIS AGAINST TRANSPLANT REJECTION
     Route: 048
  5. NEORAL [Suspect]
     Route: 048
  6. CORTANCYL [Suspect]
     Indication: RENAL TRANSPLANT
     Route: 048
     Dates: start: 20120213
  7. AMOXICILLIN [Concomitant]

REACTIONS (10)
  - Lymphocele [Recovering/Resolving]
  - Inflammation [Recovering/Resolving]
  - Renal failure [Recovered/Resolved]
  - Bacterial pyelonephritis [Recovering/Resolving]
  - Anaemia [Recovering/Resolving]
  - Hypogammaglobulinaemia [Recovering/Resolving]
  - Hypotonia [Recovering/Resolving]
  - Superinfection [Recovering/Resolving]
  - Renal failure acute [Recovered/Resolved]
  - Lymphocele [Recovering/Resolving]
